FAERS Safety Report 20474159 (Version 2)
Quarter: 2022Q1

REPORT INFORMATION
  Report Type: Spontaneous
  Country: US (occurrence: None)
  Receive Date: 20220215
  Receipt Date: 20220314
  Transmission Date: 20220424
  Serious: No
  Sender: FDA-Public Use
  Company Number: 2022A053390

PATIENT
  Sex: Female
  Weight: 104.3 kg

DRUGS (2)
  1. BYDUREON BCISE [Suspect]
     Active Substance: EXENATIDE
     Indication: Type 2 diabetes mellitus
     Route: 058
     Dates: start: 2020
  2. BYDUREON [Suspect]
     Active Substance: EXENATIDE
     Indication: Product used for unknown indication
     Dosage: 2.0MG UNKNOWN
     Route: 065

REACTIONS (5)
  - Malaise [Not Recovered/Not Resolved]
  - Sinus disorder [Not Recovered/Not Resolved]
  - Device mechanical issue [Unknown]
  - Device leakage [Unknown]
  - Product use complaint [Unknown]
